APPROVED DRUG PRODUCT: DICYCLOMINE HYDROCHLORIDE
Active Ingredient: DICYCLOMINE HYDROCHLORIDE
Strength: 10MG/ML
Dosage Form/Route: INJECTABLE;INJECTION
Application: A206468 | Product #001
Applicant: NEXUS PHARMACEUTICALS LLC
Approved: Feb 1, 2019 | RLD: No | RS: No | Type: DISCN